FAERS Safety Report 5528983-7 (Version None)
Quarter: 2007Q4

REPORT INFORMATION
  Report Type: 
  Country: None (occurrence: None)
  Receive Date: 20071109
  Receipt Date: 20070525
  Transmission Date: 20080405
  Serious: Yes (Other)
  Sender: FDA-Public Use
  Company Number: PHEH2005US07991

PATIENT
  Age: 48 Year
  Sex: Female
  Weight: 56.2 kg

DRUGS (13)
  1. ESTRADERM [Suspect]
     Indication: HORMONE REPLACEMENT THERAPY
     Dosage: TRANSDERMAL
     Route: 062
     Dates: start: 19950701, end: 19970701
  2. PREMARIN [Suspect]
     Indication: HORMONE REPLACEMENT THERAPY
     Dosage: 1.25MG ; 0.625MG
     Dates: end: 19980901
  3. PREMARIN [Suspect]
     Indication: HORMONE REPLACEMENT THERAPY
     Dosage: 1.25MG ; 0.625MG
     Dates: start: 19940801
  4. PROVERA [Suspect]
     Indication: HORMONE REPLACEMENT THERAPY
     Dosage: 10MG ; 2.5MG
     Dates: start: 19930601, end: 19980901
  5. PROVERA [Suspect]
     Indication: HORMONE REPLACEMENT THERAPY
     Dosage: 10MG ; 2.5MG
     Dates: start: 19940801, end: 19980901
  6. ESTRATEST [Suspect]
     Indication: HORMONE REPLACEMENT THERAPY
     Dosage: 1.25MG
     Dates: start: 19950101, end: 19950101
  7. ESTRACE [Suspect]
     Indication: HORMONE REPLACEMENT THERAPY
     Dates: start: 19970701, end: 19970801
  8. ORTHO-NOVIN (MESTRANOL, NORETHISTERONE) [Concomitant]
  9. MICRONOR [Concomitant]
  10. WIGRAINE (BELLADONNA ALKALOIDS, CAFFEINE, ERGOTAMINE TARTRATE) [Concomitant]
  11. ZOLOFT [Concomitant]
  12. PAXIL [Concomitant]
  13. PROZAC [Concomitant]

REACTIONS (9)
  - ANXIETY [None]
  - BREAST CANCER [None]
  - BREAST PROSTHESIS IMPLANTATION [None]
  - BREAST RECONSTRUCTION [None]
  - DEPRESSION [None]
  - DISABILITY [None]
  - INJURY [None]
  - MASTECTOMY [None]
  - PAIN [None]
